FAERS Safety Report 5565033-0 (Version None)
Quarter: 2007Q4

REPORT INFORMATION
  Report Type: 
  Country: None (occurrence: None)
  Receive Date: 20071218
  Receipt Date: 20071217
  Transmission Date: 20080405
  Serious: Yes (Hospitalization, Other)
  Sender: FDA-Public Use
  Company Number: GB-ROCHE-473851

PATIENT
  Age: 43 Year
  Sex: Male

DRUGS (10)
  1. SAQUINAVIR FORMULATION UNKNOWN [Suspect]
     Dosage: REPORTED AS HARD GEL
     Route: 048
     Dates: start: 19980401
  2. COTRIM [Suspect]
     Route: 065
     Dates: end: 19980401
  3. CYCLOPHOSPHAMIDE [Suspect]
     Indication: BURKITT'S LYMPHOMA
     Route: 042
     Dates: start: 19980101, end: 19980901
  4. CYTARABINE [Suspect]
     Indication: BURKITT'S LYMPHOMA
     Route: 037
     Dates: start: 19980401, end: 19980901
  5. DOXORUBICIN HCL [Suspect]
     Indication: BURKITT'S LYMPHOMA
     Route: 042
     Dates: start: 19980101, end: 19980901
  6. HYDROCORTISONE [Suspect]
     Indication: BURKITT'S LYMPHOMA
     Route: 037
     Dates: start: 19980401, end: 19980901
  7. METHOTREXATE [Suspect]
     Indication: BURKITT'S LYMPHOMA
     Route: 037
     Dates: start: 19980101, end: 19980901
  8. PREDNISOLONE [Suspect]
     Indication: BURKITT'S LYMPHOMA
     Dosage: DURATION REPORTED AS 3.5 MONTHS
     Route: 048
     Dates: start: 19980401, end: 19980901
  9. RITONAVIR [Suspect]
     Route: 048
     Dates: start: 19980401
  10. VINCRISTINE [Suspect]
     Indication: BURKITT'S LYMPHOMA
     Route: 042
     Dates: start: 19980101, end: 19980901

REACTIONS (9)
  - BACK PAIN [None]
  - BLOOD CHOLESTEROL INCREASED [None]
  - BLOOD TRIGLYCERIDES INCREASED [None]
  - MULTIPLE FRACTURES [None]
  - OSTEONECROSIS [None]
  - OSTEOPOROSIS [None]
  - PAIN IN EXTREMITY [None]
  - SPINAL COMPRESSION FRACTURE [None]
  - SPINAL FRACTURE [None]
